FAERS Safety Report 4448895-X (Version None)
Quarter: 2004Q3

REPORT INFORMATION
  Report Type: 
  Country: None (occurrence: None)
  Receive Date: 20040909
  Receipt Date: 20040831
  Transmission Date: 20050211
  Serious: Yes (Hospitalization)
  Sender: FDA-Public Use
  Company Number: TPA2004A01064

PATIENT
  Age: 57 Year
  Sex: Female
  Weight: 141.5223 kg

DRUGS (3)
  1. ACTOS [Suspect]
     Indication: DIABETES MELLITUS
     Dosage: 45 MG, 1 IN 1 D, PER ORAL
     Route: 048
     Dates: start: 20010101
  2. HUMALOG [Suspect]
     Dosage: SLIDING SCALE
     Dates: start: 20010901
  3. LANTUS [Concomitant]

REACTIONS (3)
  - ARTHROPOD BITE [None]
  - ENDOMETRIAL CANCER STAGE II [None]
  - RASH ERYTHEMATOUS [None]
